FAERS Safety Report 9539233 (Version 1)
Quarter: 2013Q2

REPORT INFORMATION
  Report Type: Spontaneous
  Country: US (occurrence: None)
  Receive Date: 20130521
  Receipt Date: 20130521
  Transmission Date: 20140414
  Serious: No
  Sender: FDA-Public Use
  Company Number: 1000043505

PATIENT
  Age: 86 Year
  Sex: Female

DRUGS (3)
  1. TUDORZA PRESSAIR (ACLIDINIUM BROMIDE) (400 MICROGRAM, POWDER) [Suspect]
     Indication: EMPHYSEMA
     Dosage: (400 MCG, 2 IN 1 D) RESPIRATORY (INHALATION)
     Dates: start: 20130311, end: 20130314
  2. NIFEDIPINE (NIFEDIPINE) (NIFEDIPINE) [Concomitant]
  3. HYDROCHLOROTHIAZIDE (HYDROCHLOROTHIAZIDE) (HYDROCHLOROTHIAZIDE) [Concomitant]

REACTIONS (2)
  - Dysphonia [None]
  - Throat irritation [None]
